FAERS Safety Report 7719627-4 (Version None)
Quarter: 2011Q3

REPORT INFORMATION
  Report Type: 
  Country: None (occurrence: None)
  Receive Date: 20110830
  Receipt Date: 20110815
  Transmission Date: 20111222
  Serious: Yes (Other)
  Sender: FDA-Public Use
  Company Number: US-BAYER-2011-074149

PATIENT
  Sex: Female

DRUGS (1)
  1. ALEVE (CAPLET) [Suspect]
     Indication: BACK PAIN
     Dosage: COUNT SIZE NOT REPORTED
     Route: 048

REACTIONS (4)
  - CATHETER SITE PAIN [None]
  - CATHETER SITE INFECTION [None]
  - CATHETER SITE ERYTHEMA [None]
  - GASTRIC ULCER [None]
